FAERS Safety Report 15449934 (Version 2)
Quarter: 2018Q4

REPORT INFORMATION
  Report Type: Spontaneous
  Country: KR (occurrence: KR)
  Receive Date: 20181001
  Receipt Date: 20181001
  Transmission Date: 20190204
  Serious: Yes (Other)
  Sender: FDA-Public Use
  Company Number: KR-SUN PHARMACEUTICAL INDUSTRIES LTD-2018R1-176443

PATIENT
  Age: 59 Year
  Sex: Male

DRUGS (7)
  1. IMMUNOGLOBULIN (IVIG) [Concomitant]
     Active Substance: HUMAN IMMUNOGLOBULIN G
     Indication: IMMUNE ENHANCEMENT THERAPY
     Dosage: 0.4 G/KG FOR 5 DAYS
     Route: 042
  2. TOCILIZUMAB. [Concomitant]
     Active Substance: TOCILIZUMAB
     Indication: IMMUNE ENHANCEMENT THERAPY
     Dosage: 8 MG/KG, FOUR CYCLES
     Route: 065
  3. VALPROIC ACID. [Concomitant]
     Active Substance: VALPROIC ACID
     Indication: LIMBIC ENCEPHALITIS
     Dosage: 600 MG, BID
     Route: 048
  4. METHYLPREDNISOLONE. [Concomitant]
     Active Substance: METHYLPREDNISOLONE
     Indication: IMMUNE ENHANCEMENT THERAPY
     Dosage: 500 MG, UNK
     Route: 065
  5. LEVETIRACETAM. [Suspect]
     Active Substance: LEVETIRACETAM
     Indication: LIMBIC ENCEPHALITIS
     Dosage: 1000 MG, BID
     Route: 048
  6. IMMUNOGLOBULIN (IVIG) [Concomitant]
     Active Substance: HUMAN IMMUNOGLOBULIN G
     Dosage: IVIG BOOSTING AT 0.4 G/KG FOR 1 DAY
  7. RITUXIMAB. [Concomitant]
     Active Substance: RITUXIMAB
     Indication: IMMUNE ENHANCEMENT THERAPY
     Dosage: 375 MG/M2, 4 CYCLES
     Route: 065

REACTIONS (5)
  - Psychiatric symptom [Recovered/Resolved]
  - Anger [Recovered/Resolved]
  - Irritability [Recovered/Resolved]
  - Aggression [Recovered/Resolved]
  - Agitation [Recovered/Resolved]
